FAERS Safety Report 24523852 (Version 4)
Quarter: 2025Q1

REPORT INFORMATION
  Report Type: Report from Study
  Country: US (occurrence: US)
  Receive Date: 20241018
  Receipt Date: 20250312
  Transmission Date: 20250408
  Serious: Yes (Hospitalization, Other)
  Sender: BAYER HEALTHCARE PHARMACEUTICALS INC.
  Company Number: US-BAYER-2024A145240

PATIENT
  Age: 73 Year
  Sex: Male

DRUGS (20)
  1. NUBEQA [Suspect]
     Active Substance: DAROLUTAMIDE
     Indication: Hormone-refractory prostate cancer
     Dosage: 600 MG, BID
     Route: 048
     Dates: start: 20241002
  2. NUBEQA [Suspect]
     Active Substance: DAROLUTAMIDE
     Indication: Hormone-refractory prostate cancer
     Dosage: 600 MG, BID
     Route: 048
  3. NUBEQA [Suspect]
     Active Substance: DAROLUTAMIDE
     Indication: Hormone-refractory prostate cancer
     Dosage: 600 MG, BID
     Route: 048
  4. TAMSULOSIN HYDROCHLORIDE [Suspect]
     Active Substance: TAMSULOSIN HYDROCHLORIDE
     Indication: Prostatic disorder
  5. ELIQUIS [Concomitant]
     Active Substance: APIXABAN
     Indication: Thrombosis prophylaxis
  6. AMBIEN [Concomitant]
     Active Substance: ZOLPIDEM TARTRATE
  7. CYANOCOBALAMIN [Concomitant]
     Active Substance: CYANOCOBALAMIN
  8. ZYRTEC [Concomitant]
     Active Substance: CETIRIZINE HYDROCHLORIDE
     Indication: Rhinitis allergic
  9. ROSUVASTATIN CALCIUM [Concomitant]
     Active Substance: ROSUVASTATIN CALCIUM
     Indication: Hypercholesterolaemia
  10. OMEPRAZOLE [Concomitant]
     Active Substance: OMEPRAZOLE
  11. ELIGARD [Concomitant]
     Active Substance: LEUPROLIDE ACETATE
  12. LISINOPRIL [Concomitant]
     Active Substance: LISINOPRIL
     Indication: Hypertension
  13. DEXAMETHASONE [Concomitant]
     Active Substance: DEXAMETHASONE
  14. SINGULAIR [Concomitant]
     Active Substance: MONTELUKAST SODIUM
     Indication: Rhinitis allergic
  15. FLONASE [Concomitant]
     Active Substance: FLUTICASONE PROPIONATE
     Indication: Rhinitis allergic
  16. LUPRON [Concomitant]
     Active Substance: LEUPROLIDE ACETATE
     Indication: Prostate cancer
  17. MESALAMINE [Concomitant]
     Active Substance: MESALAMINE
  18. OMEPRAZOLE SODIUM [Concomitant]
     Active Substance: OMEPRAZOLE SODIUM
     Indication: Dyspepsia
  19. IRON [Concomitant]
     Active Substance: IRON
     Indication: Blood iron decreased
  20. ADVAIR HFA [Concomitant]
     Active Substance: FLUTICASONE PROPIONATE\SALMETEROL XINAFOATE

REACTIONS (9)
  - Brain operation [Recovering/Resolving]
  - Mobility decreased [Not Recovered/Not Resolved]
  - Respiration abnormal [Not Recovered/Not Resolved]
  - Adverse drug reaction [Recovering/Resolving]
  - Fatigue [Not Recovered/Not Resolved]
  - Craniotomy [None]
  - Confusional state [None]
  - Dizziness [Recovering/Resolving]
  - Pain [Recovering/Resolving]

NARRATIVE: CASE EVENT DATE: 20240101
